FAERS Safety Report 12285490 (Version 2)
Quarter: 2016Q2

REPORT INFORMATION
  Report Type: Spontaneous
  Country: US (occurrence: US)
  Receive Date: 20160420
  Receipt Date: 20160502
  Transmission Date: 20160815
  Serious: No
  Sender: FDA-Public Use
  Company Number: US-BAYER-2016-075433

PATIENT
  Age: 26 Year
  Sex: Female
  Weight: 60.31 kg

DRUGS (1)
  1. CLARITIN-D 24 HOUR [Suspect]
     Active Substance: LORATADINE\PSEUDOEPHEDRINE SULFATE
     Indication: NASAL CONGESTION
     Dosage: 1 DF, PRN
     Route: 048
     Dates: start: 20160418

REACTIONS (2)
  - Gingival pain [None]
  - Oral discomfort [Recovering/Resolving]

NARRATIVE: CASE EVENT DATE: 20160418
